FAERS Safety Report 21121553 (Version 2)
Quarter: 2022Q3

REPORT INFORMATION
  Report Type: Spontaneous
  Country: GR (occurrence: GR)
  Receive Date: 20220722
  Receipt Date: 20220809
  Transmission Date: 20221026
  Serious: Yes (Hospitalization, Other)
  Sender: FDA-Public Use
  Company Number: GR-TEVA-2022-GR-2053138

PATIENT
  Age: 63 Year
  Sex: Female

DRUGS (4)
  1. VELCADE [Suspect]
     Active Substance: BORTEZOMIB
     Indication: Plasma cell myeloma refractory
     Dosage: UNK
     Route: 065
  2. VELCADE [Suspect]
     Active Substance: BORTEZOMIB
     Dosage: UNK
     Route: 048
  3. LENALIDOMIDE [Concomitant]
     Active Substance: LENALIDOMIDE
     Indication: Plasma cell myeloma
     Dosage: UNK
     Route: 065
  4. DEXAMETHASONE [Concomitant]
     Active Substance: DEXAMETHASONE
     Indication: Plasma cell myeloma recurrent
     Dosage: UNK
     Route: 065

REACTIONS (16)
  - Reversible cerebral vasoconstriction syndrome [Unknown]
  - Aphasia [Recovered/Resolved]
  - Hemianopia [Recovered/Resolved]
  - Altered state of consciousness [Recovered/Resolved]
  - Agnosia [Recovered/Resolved]
  - Infarction [Recovered/Resolved]
  - Sluggishness [Recovered/Resolved]
  - Vasospasm [Recovered/Resolved]
  - Generalised tonic-clonic seizure [Recovered/Resolved]
  - Vasoconstriction [Recovered/Resolved]
  - Blindness cortical [Recovered/Resolved]
  - Disorientation [Recovered/Resolved]
  - Confusional state [Recovered/Resolved]
  - Angioedema [Recovered/Resolved]
  - Headache [Recovered/Resolved]
  - Off label use [Unknown]
